FAERS Safety Report 9387627 (Version 3)
Quarter: 2013Q4

REPORT INFORMATION
  Report Type: Spontaneous
  Country: JP (occurrence: JP)
  Receive Date: 20130708
  Receipt Date: 20131111
  Transmission Date: 20140711
  Serious: Yes (Other)
  Sender: FDA-Public Use
  Company Number: JP-PFIZER INC-2013187771

PATIENT
  Age: 91 Year
  Sex: Male

DRUGS (2)
  1. TOVIAZ [Suspect]
     Indication: HYPERTONIC BLADDER
     Dosage: 4 MG, ONCE DAILY
     Route: 048
     Dates: start: 20130315, end: 20130412
  2. FLIVAS [Suspect]
     Indication: BENIGN PROSTATIC HYPERPLASIA
     Dosage: 25 MG, 1X/DAY
     Route: 048
     Dates: start: 20130222, end: 20130416

REACTIONS (5)
  - Urinary retention [Recovered/Resolved]
  - Hypotonic urinary bladder [Recovering/Resolving]
  - Colon cancer [Unknown]
  - Haemorrhoids [Not Recovered/Not Resolved]
  - Large intestine polyp [Recovering/Resolving]
